FAERS Safety Report 16247300 (Version 2)
Quarter: 2019Q2

REPORT INFORMATION
  Report Type: Other
  Country: CA (occurrence: CA)
  Receive Date: 20190427
  Receipt Date: 20190603
  Transmission Date: 20190711
  Serious: Yes (Other)
  Sender: FDA-Public Use
  Company Number: CA-COLGATE PALMOLIVE COMPANY-20190401183

PATIENT

DRUGS (35)
  1. OXYCODONE TEREPHTHALATE [Suspect]
     Active Substance: OXYCODONE TEREPHTHALATE
  2. SIMPONI [Suspect]
     Active Substance: GOLIMUMAB
     Route: 058
  3. ZOPICLONE [Concomitant]
     Active Substance: ZOPICLONE
  4. PANTOPRAZOLE [Concomitant]
     Active Substance: PANTOPRAZOLE
  5. CAMELLIA SINENSIS; D-ALPHA TOCOPHEROL; FISH OIL; VITAMIN D3 [Concomitant]
  6. VENTOLIN [Concomitant]
     Active Substance: ALBUTEROL SULFATE
  7. ORENCIA [Suspect]
     Active Substance: ABATACEPT
  8. ACETAMINOPHEN. [Suspect]
     Active Substance: ACETAMINOPHEN
  9. HYDROXYCHLOROQUINE [Concomitant]
     Active Substance: HYDROXYCHLOROQUINE
  10. PLAQUENIL [Concomitant]
     Active Substance: HYDROXYCHLOROQUINE SULFATE
  11. REACTINE (CETIRIZINE HYDROCHLORIDE) [Concomitant]
     Active Substance: CETIRIZINE HYDROCHLORIDE
  12. ACTEMRA [Suspect]
     Active Substance: TOCILIZUMAB
  13. OXYCODONE HYDROCHLORIDE. [Suspect]
     Active Substance: OXYCODONE HYDROCHLORIDE
  14. ENBREL [Suspect]
     Active Substance: ETANERCEPT
     Indication: RHEUMATOID ARTHRITIS
     Route: 058
  15. CIMZIA [Suspect]
     Active Substance: CERTOLIZUMAB PEGOL
     Indication: RHEUMATOID ARTHRITIS
     Dosage: 400 MG, CYCLICAL
     Route: 058
  16. PERIOGARD [Suspect]
     Active Substance: CHLORHEXIDINE GLUCONATE
  17. TYLENOL [Concomitant]
     Active Substance: ACETAMINOPHEN
  18. VITAMIN D3 [Concomitant]
     Active Substance: CHOLECALCIFEROL
  19. TEA, GREEN [Concomitant]
     Active Substance: GREEN TEA LEAF
  20. PREDNISONE. [Concomitant]
     Active Substance: PREDNISONE
  21. PANTOPRAZOLE SODIUM ANHYDROUS [Concomitant]
     Active Substance: PANTOPRAZOLE SODIUM ANHYDROUS
  22. CHOLECALCIFEROL [Concomitant]
     Active Substance: CHOLECALCIFEROL
  23. LEFLUNOMIDE. [Suspect]
     Active Substance: LEFLUNOMIDE
  24. DESOGESTREL; ETHINYL ESTRADIOL [Concomitant]
  25. METHOTREXATE. [Suspect]
     Active Substance: METHOTREXATE
  26. ACETAMINOPHEN; OXYCODONE HYDROCHLORIDE; OXYCODONE TEREPHTHALATE [Suspect]
     Active Substance: ACETAMINOPHEN\OXYCODONE HYDROCHLORIDE\OXYCODONE TEREPHTHALATE
  27. FISH OIL [Concomitant]
     Active Substance: FISH OIL
  28. OXYCODONE [Suspect]
     Active Substance: OXYCODONE
  29. VITAMIN C [Concomitant]
     Active Substance: ASCORBIC ACID
  30. COENZYME Q10 [Concomitant]
     Active Substance: UBIDECARENONE
  31. PANTOLOC [Concomitant]
     Active Substance: PANTOPRAZOLE SODIUM
  32. ERGOCALCIFEROL. [Concomitant]
     Active Substance: ERGOCALCIFEROL
  33. CHLORHEXIDINE UNSPECIFIED [Suspect]
     Active Substance: CHLORHEXIDINE
  34. ARAVA [Suspect]
     Active Substance: LEFLUNOMIDE
  35. IBUPROFEN. [Concomitant]
     Active Substance: IBUPROFEN

REACTIONS (20)
  - Urticaria [Unknown]
  - Lower respiratory tract infection [Unknown]
  - Ear pain [Unknown]
  - Asthenia [Unknown]
  - Insomnia [Unknown]
  - Back pain [Unknown]
  - Headache [Unknown]
  - Rash [Unknown]
  - Pain [Unknown]
  - Abdominal pain upper [Unknown]
  - Respiratory disorder [Unknown]
  - Vomiting [Unknown]
  - Peripheral swelling [Unknown]
  - Night sweats [Unknown]
  - Pruritus generalised [Unknown]
  - Diarrhoea [Unknown]
  - Joint swelling [Unknown]
  - Sinusitis [Unknown]
  - Muscle spasticity [Unknown]
  - Body temperature increased [Unknown]
